FAERS Safety Report 20168998 (Version 1)
Quarter: 2021Q4

REPORT INFORMATION
  Report Type: Other
  Country: MX (occurrence: None)
  Receive Date: 20211210
  Receipt Date: 20211210
  Transmission Date: 20220304
  Serious: Yes (Hospitalization)
  Sender: FDA-Public Use
  Company Number: MX-ROCHE-2969651

PATIENT
  Age: 2 Year
  Sex: Male
  Weight: 15.13 kg

DRUGS (5)
  1. PULMOZYME [Suspect]
     Active Substance: DORNASE ALFA
     Indication: Cystic fibrosis
     Dosage: DORNASA ALPHA (DEOXYRIBONUCLEASE) 2,500 IU/2.5 ML
     Route: 055
     Dates: start: 201708
  2. ALBUTEROL [Concomitant]
     Active Substance: ALBUTEROL
     Indication: Cystic fibrosis
     Dosage: 0.5 MG UNIT NOT REPORTED, TWICE A DAY BY NEBULIZATION
     Route: 055
     Dates: start: 2017
  3. CREON [Concomitant]
     Active Substance: PANCRELIPASE AMYLASE\PANCRELIPASE LIPASE\PANCRELIPASE PROTEASE
     Indication: Cystic fibrosis
     Dosage: 1000 U, 30000 U, 35000 U AND 25000 U SUBSEQUENTLY
     Dates: start: 2017
  4. VITAMIN E [Concomitant]
     Active Substance: .ALPHA.-TOCOPHEROL
  5. VITAMIN C [Concomitant]
     Active Substance: ASCORBIC ACID

REACTIONS (4)
  - Off label use [Unknown]
  - Respiratory distress [Recovered/Resolved]
  - Hypoxia [Recovered/Resolved]
  - Carbon dioxide increased [Recovered/Resolved]

NARRATIVE: CASE EVENT DATE: 20170801
